FAERS Safety Report 9320412 (Version 2)
Quarter: 2013Q3

REPORT INFORMATION
  Report Type: Spontaneous
  Country: US (occurrence: US)
  Receive Date: 20130530
  Receipt Date: 20130920
  Transmission Date: 20140515
  Serious: Yes (Other)
  Sender: FDA-Public Use
  Company Number: US-B.I. PHARMACEUTICALS,INC./RIDGEFIELD-2013-BI-14582BP

PATIENT
  Age: 70 Year
  Sex: Female
  Weight: 88.45 kg

DRUGS (8)
  1. PRADAXA [Suspect]
     Indication: ATRIAL FIBRILLATION
     Dosage: 300 MG
     Dates: start: 20110727, end: 20110901
  2. AMIODARONE [Concomitant]
  3. LEVOTHYROXINE [Concomitant]
  4. LIPITOR [Concomitant]
  5. PLAVIX [Concomitant]
     Dates: start: 2009, end: 201109
  6. POTASSIUM CHLORIDE [Concomitant]
  7. MULTAQ [Concomitant]
     Indication: ATRIAL FIBRILLATION
     Dosage: 800 MG
     Route: 048
  8. ASPIRIN [Concomitant]

REACTIONS (7)
  - Renal failure acute [Recovered/Resolved]
  - Gastrointestinal haemorrhage [Recovered/Resolved]
  - Epistaxis [Unknown]
  - Contusion [Unknown]
  - Normochromic normocytic anaemia [Unknown]
  - Gingival bleeding [Unknown]
  - Toxicity to various agents [Unknown]
